FAERS Safety Report 6692485-5 (Version None)
Quarter: 2010Q2

REPORT INFORMATION
  Report Type: 
  Country: None (occurrence: None)
  Receive Date: 20100422
  Receipt Date: 20100416
  Transmission Date: 20101027
  Serious: Yes (Other)
  Sender: FDA-Public Use
  Company Number: A0856147A

PATIENT
  Age: 45 Year
  Sex: Female

DRUGS (4)
  1. FLOVENT [Suspect]
     Indication: ASTHMA
     Route: 055
     Dates: start: 20100226, end: 20100315
  2. SPIRIVA [Suspect]
     Indication: EMPHYSEMA
     Dosage: 18MCG PER DAY
     Route: 055
     Dates: start: 20100226
  3. ALBUTEROL [Concomitant]
     Indication: PAIN
  4. VICODIN [Concomitant]
     Indication: PAIN

REACTIONS (7)
  - ABDOMINAL DISTENSION [None]
  - BACK PAIN [None]
  - BREAST CANCER [None]
  - DYSPNOEA [None]
  - JOINT SWELLING [None]
  - RASH [None]
  - RASH ERYTHEMATOUS [None]
